FAERS Safety Report 12463316 (Version 1)
Quarter: 2016Q2

REPORT INFORMATION
  Report Type: Spontaneous
  Country: US (occurrence: None)
  Receive Date: 20160613
  Receipt Date: 20160613
  Transmission Date: 20160815
  Serious: Yes (Other)
  Sender: FDA-Public Use
  Company Number: None

PATIENT
  Age: 54 Year
  Sex: Male

DRUGS (7)
  1. FISH OIL [Concomitant]
     Active Substance: FISH OIL
  2. HAMMER MITO CAPS [Concomitant]
  3. LOW DOSE ASPIRIN [Concomitant]
     Active Substance: ASPIRIN
  4. LEVOFLOXACIN, 500 MG [Suspect]
     Active Substance: LEVOFLOXACIN
     Indication: EPIDIDYMITIS
     Route: 048
     Dates: start: 20160602, end: 20160602
  5. COQ10 [Concomitant]
     Active Substance: UBIDECARENONE
  6. HAMMER PREMIUM INSURANCE CAPS [Concomitant]
  7. HAMMER AD BOOSTER [Concomitant]

REACTIONS (2)
  - Burning sensation [None]
  - Muscle tightness [None]

NARRATIVE: CASE EVENT DATE: 20160602
